FAERS Safety Report 4508243-3 (Version None)
Quarter: 2004Q4

REPORT INFORMATION
  Report Type: 
  Country: None (occurrence: None)
  Receive Date: 20041123
  Receipt Date: 20031126
  Transmission Date: 20050328
  Serious: No
  Sender: FDA-Public Use
  Company Number: US-GLAXOSMITHKLINE-A0441534A

PATIENT
  Age: 51 Year
  Sex: Female
  Weight: 59.1 kg

DRUGS (3)
  1. WELLBUTRIN [Suspect]
     Indication: DEPRESSION
     Dosage: 100MG PER DAY
     Route: 048
     Dates: start: 20021119, end: 20031128
  2. ZOLOFT [Suspect]
     Indication: DEPRESSION
     Dosage: 50MG UNKNOWN
     Route: 048
  3. VERAPAMIL [Concomitant]
     Indication: MIGRAINE PROPHYLAXIS
     Dosage: 240MG PER DAY

REACTIONS (4)
  - ASTHENIA [None]
  - EUPHORIC MOOD [None]
  - FATIGUE [None]
  - MENTAL DISORDER [None]
